FAERS Safety Report 25039149 (Version 2)
Quarter: 2025Q1

REPORT INFORMATION
  Report Type: Spontaneous
  Country: US (occurrence: US)
  Receive Date: 20250305
  Receipt Date: 20250324
  Transmission Date: 20250409
  Serious: No
  Sender: ROCHE
  Company Number: US-ROCHE-10000221643

PATIENT
  Age: 38 Year
  Sex: Female

DRUGS (2)
  1. OCREVUS [Suspect]
     Active Substance: OCRELIZUMAB
     Indication: Multiple sclerosis
     Route: 058
  2. HYALURONIDASE [Concomitant]
     Active Substance: HYALURONIDASE

REACTIONS (4)
  - Haematoma [Unknown]
  - Injection site swelling [Unknown]
  - Contusion [Unknown]
  - Tenderness [Unknown]

NARRATIVE: CASE EVENT DATE: 20250101
